FAERS Safety Report 9045409 (Version 1)
Quarter: 2013Q1

REPORT INFORMATION
  Report Type: Report from Study
  Country: US (occurrence: US)
  Receive Date: 20130131
  Receipt Date: 20130131
  Transmission Date: 20140127
  Serious: No
  Sender: FDA-Public Use
  Company Number: US-ABBOTT-12P-163-1002358-00

PATIENT
  Age: 84 Year
  Sex: Female

DRUGS (9)
  1. HUMIRA [Suspect]
     Indication: CROHN^S DISEASE
     Dates: start: 20120829
  2. ASACOL [Concomitant]
     Indication: CROHN^S DISEASE
  3. CITALOPRAM [Concomitant]
     Indication: DEPRESSION
  4. LOSARTAN HCT [Concomitant]
     Indication: BLOOD PRESSURE
     Dosage: 100/25MG DAILY
  5. OMEPRAZOLE [Concomitant]
     Indication: HIATUS HERNIA
  6. VYTORIN [Concomitant]
     Indication: BLOOD CHOLESTEROL
     Dosage: 10/20MG DAILY
  7. CALTRATE [Concomitant]
     Indication: PRODUCT USED FOR UNKNOWN INDICATION
     Dosage: 2 CARMELS DAILY
  8. FLINTSTONES MULTIPLE VITAMINS [Concomitant]
     Indication: PRODUCT USED FOR UNKNOWN INDICATION
  9. VSL 3 [Concomitant]
     Indication: PROBIOTIC THERAPY
     Dosage: 2 PACKETS

REACTIONS (2)
  - Anxiety [Recovering/Resolving]
  - Injection site pain [Recovering/Resolving]
